FAERS Safety Report 7563934-5 (Version None)
Quarter: 2011Q2

REPORT INFORMATION
  Report Type: 
  Country: None (occurrence: None)
  Receive Date: 20110622
  Receipt Date: 20110617
  Transmission Date: 20111010
  Serious: Yes (Other)
  Sender: FDA-Public Use
  Company Number: US-UCBSA-035639

PATIENT
  Sex: Female

DRUGS (5)
  1. SYNTHROID [Concomitant]
     Indication: HYPOTHYROIDISM
     Route: 048
  2. ASACOL [Concomitant]
     Indication: CROHN'S DISEASE
     Route: 048
  3. NEXIUM [Concomitant]
     Indication: DYSPEPSIA
     Route: 048
  4. CYMBALTA [Concomitant]
     Indication: DEPRESSION
     Route: 048
  5. CIMZIA [Suspect]
     Route: 058
     Dates: start: 20110101

REACTIONS (1)
  - ABSCESS [None]
